FAERS Safety Report 9136042 (Version 1)
Quarter: 2013Q1

REPORT INFORMATION
  Report Type: Spontaneous
  Country: US (occurrence: US)
  Receive Date: 20130219
  Receipt Date: 20130219
  Transmission Date: 20140127
  Serious: No
  Sender: FDA-Public Use
  Company Number: US-BRISTOL-MYERS SQUIBB COMPANY-16485526

PATIENT
  Age: 59 Year
  Sex: Female
  Weight: 58 kg

DRUGS (4)
  1. ORENCIA FOR INJ [Suspect]
     Indication: RHEUMATOID ARTHRITIS
     Dosage: 4 INJECTIONS;FROM JAN12 IV, 17FEB-17MAY2012 SUBQ, STARTED IV AGAIN FROM JUN2012.
     Route: 058
     Dates: start: 201201
  2. IBUPROFEN [Suspect]
  3. CELEBREX [Concomitant]
  4. PREDNISONE [Concomitant]

REACTIONS (3)
  - Rheumatoid arthritis [Recovered/Resolved]
  - Drug ineffective [Unknown]
  - Somnolence [Recovered/Resolved]
